FAERS Safety Report 12217846 (Version 1)
Quarter: 2016Q1

REPORT INFORMATION
  Report Type: Spontaneous
  Country: US (occurrence: None)
  Receive Date: 20160328
  Receipt Date: 20160328
  Transmission Date: 20160526
  Serious: No
  Sender: FDA-Public Use
  Company Number: None

PATIENT
  Age: 30 Year
  Sex: Female

DRUGS (10)
  1. ZOLOFT [Concomitant]
     Active Substance: SERTRALINE HYDROCHLORIDE
  2. PYRIDOXINE [Concomitant]
     Active Substance: PYRIDOXINE
  3. NORETH/ETHIN [Concomitant]
  4. IMIQUIMOD CRE [Concomitant]
  5. PREDNISONE. [Concomitant]
     Active Substance: PREDNISONE
  6. LOESTRIN NOS [Concomitant]
     Active Substance: ETHINYL ESTRADIOL\NORETHINDRONE ACETATE
  7. FOLIC ACID. [Concomitant]
     Active Substance: FOLIC ACID
  8. XELJANZ [Suspect]
     Active Substance: TOFACITINIB CITRATE
     Indication: RHEUMATOID ARTHRITIS
     Route: 048
     Dates: start: 20151210
  9. ISONIAZID. [Concomitant]
     Active Substance: ISONIAZID
  10. METHOTREXATE [Concomitant]
     Active Substance: METHOTREXATE

REACTIONS (1)
  - Rheumatoid arthritis [None]

NARRATIVE: CASE EVENT DATE: 20160317
